FAERS Safety Report 16618534 (Version 2)
Quarter: 2019Q3

REPORT INFORMATION
  Report Type: Spontaneous
  Country: US (occurrence: US)
  Receive Date: 20190723
  Receipt Date: 20190730
  Transmission Date: 20191004
  Serious: Yes (Other)
  Sender: FDA-Public Use
  Company Number: US-BIOGEN-2019BI00765670

PATIENT
  Sex: Female

DRUGS (3)
  1. TECFIDERA [Suspect]
     Active Substance: DIMETHYL FUMARATE
     Route: 065
     Dates: end: 20180715
  2. TECFIDERA [Suspect]
     Active Substance: DIMETHYL FUMARATE
     Route: 065
     Dates: end: 20180528
  3. TECFIDERA [Suspect]
     Active Substance: DIMETHYL FUMARATE
     Indication: MULTIPLE SCLEROSIS
     Route: 065
     Dates: start: 20161221, end: 20180715

REACTIONS (10)
  - Back pain [Unknown]
  - Bronchitis [Unknown]
  - Anaphylactic reaction [Unknown]
  - Insomnia [Unknown]
  - Sinusitis [Unknown]
  - Pneumonia [Unknown]
  - Hypoaesthesia [Unknown]
  - Muscle strain [Unknown]
  - Urticaria [Unknown]
  - Cough [Unknown]
